FAERS Safety Report 9012804 (Version 2)
Quarter: 2013Q1

REPORT INFORMATION
  Report Type: Report from Study
  Country: US (occurrence: US)
  Receive Date: 20130114
  Receipt Date: 20130124
  Transmission Date: 20140127
  Serious: Yes (Other)
  Sender: FDA-Public Use
  Company Number: US-ABBOTT-13P-163-1033764-00

PATIENT
  Age: 50 Year
  Sex: Female

DRUGS (5)
  1. HUMIRA [Suspect]
     Indication: PSORIATIC ARTHROPATHY
     Dates: start: 2008, end: 201001
  2. HUMIRA [Suspect]
     Dates: start: 20121222
  3. METHOTREXATE [Concomitant]
     Indication: PSORIATIC ARTHROPATHY
     Dosage: 3 PILLS WEEKLY
  4. MAXIDE [Concomitant]
     Indication: HYPERTENSION
     Dosage: 37.5-25 DAILY
  5. DESLORATADINE [Concomitant]
     Indication: HYPERSENSITIVITY
     Dosage: DAILY

REACTIONS (8)
  - Ovarian neoplasm [Not Recovered/Not Resolved]
  - Macular degeneration [Unknown]
  - Nerve injury [Unknown]
  - Injection site haemorrhage [Unknown]
  - Injection site erythema [Unknown]
  - Injection site pain [Unknown]
  - Injection site mass [Unknown]
  - Procedural complication [Unknown]
